FAERS Safety Report 18483649 (Version 6)
Quarter: 2023Q1

REPORT INFORMATION
  Report Type: Spontaneous
  Country: IT (occurrence: IT)
  Receive Date: 20201109
  Receipt Date: 20230307
  Transmission Date: 20230417
  Serious: Yes (Hospitalization, Other)
  Sender: FDA-Public Use
  Company Number: IT-WATSON-2015-08316

PATIENT
  Age: 6 Year
  Sex: Female

DRUGS (4)
  1. AMOXICILLIN [Suspect]
     Active Substance: AMOXICILLIN
     Indication: Product used for unknown indication
     Dosage: 50 MILLIGRAM/KILOGRAM, ONCE A DAY (ADMINISTERED EVERY 30 MINUTES)
     Route: 048
  2. AMOXICILLIN [Suspect]
     Active Substance: AMOXICILLIN
     Dosage: 350 MILLIGRAM
     Route: 048
  3. HYDROCORTISONE [Suspect]
     Active Substance: HYDROCORTISONE
     Indication: Enterocolitis
     Dosage: UNK
     Route: 042
  4. SODIUM CHLORIDE [Concomitant]
     Active Substance: SODIUM CHLORIDE
     Indication: Enterocolitis
     Dosage: UNK
     Route: 042

REACTIONS (12)
  - Enterocolitis [Recovered/Resolved]
  - Vomiting [Recovered/Resolved]
  - Drug hypersensitivity [Unknown]
  - Lethargy [Recovered/Resolved]
  - Rash morbilliform [Unknown]
  - Pallor [Unknown]
  - Diarrhoea [Unknown]
  - Neutrophilia [Unknown]
  - White blood cell count increased [Unknown]
  - Methaemoglobinaemia [Unknown]
  - Gastroenteritis [Unknown]
  - Hypotension [Recovered/Resolved]
